FAERS Safety Report 10586715 (Version 1)
Quarter: 2014Q4

REPORT INFORMATION
  Report Type: Spontaneous
  Country: US (occurrence: None)
  Receive Date: 20141114
  Receipt Date: 20141114
  Transmission Date: 20150529
  Serious: No
  Sender: FDA-Public Use
  Company Number: None

PATIENT
  Age: 88 Year
  Sex: Female
  Weight: 45 kg

DRUGS (15)
  1. BUPRENORPHINE [Suspect]
     Active Substance: BUPRENORPHINE
     Indication: PAIN
     Dosage: ONE PATCH WEEKLY TOPICAL
     Route: 061
  2. FUROSEMIDE. [Concomitant]
     Active Substance: FUROSEMIDE
  3. FAMOTIDINE. [Concomitant]
     Active Substance: FAMOTIDINE
  4. SACCHAROMYCES BOULARDII [Concomitant]
     Active Substance: SACCHAROMYCES CEREVISIAE
  5. ATORVASTATIN [Concomitant]
     Active Substance: ATORVASTATIN
  6. CRANBERRY. [Concomitant]
     Active Substance: CRANBERRY
  7. DICLOFENAC [Concomitant]
     Active Substance: DICLOFENAC
  8. WARFARIN [Concomitant]
     Active Substance: WARFARIN
  9. ALLOPURINOL. [Concomitant]
     Active Substance: ALLOPURINOL
  10. CALCIUM CARBONATE. [Concomitant]
     Active Substance: CALCIUM CARBONATE
  11. METHYLPHENIDATE [Concomitant]
     Active Substance: METHYLPHENIDATE
  12. CHOLESTYRAMINE. [Concomitant]
     Active Substance: CHOLESTYRAMINE
  13. CARVEDILOL. [Concomitant]
     Active Substance: CARVEDILOL
  14. ARTIFICIAL TEARS [Concomitant]
     Active Substance: GLYCERIN\HYPROMELLOSES\POLYETHYLENE GLYCOL 400
  15. MULTIVITAMIN [Concomitant]
     Active Substance: VITAMINS

REACTIONS (6)
  - Lethargy [None]
  - Catheter site extravasation [None]
  - Hypoxia [None]
  - Cough [None]
  - Constipation [None]
  - Sedation [None]

NARRATIVE: CASE EVENT DATE: 20141023
